FAERS Safety Report 13413211 (Version 3)
Quarter: 2018Q1

REPORT INFORMATION
  Report Type: Spontaneous
  Country: IT (occurrence: IT)
  Receive Date: 20170407
  Receipt Date: 20180326
  Transmission Date: 20180508
  Serious: Yes (Hospitalization)
  Sender: FDA-Public Use
  Company Number: IT-ROCHE-1914262

PATIENT
  Age: 34 Year
  Sex: Female

DRUGS (3)
  1. TALOFEN [Suspect]
     Active Substance: PROMAZINE HYDROCHLORIDE
     Indication: DRUG ABUSE
     Dosage: 4 G/100 ML  BOTTLE 30 ML. PERIOD: 1 DAY
     Route: 048
     Dates: start: 20170122
  2. RIVOTRIL [Suspect]
     Active Substance: CLONAZEPAM
     Indication: DRUG ABUSE
     Dosage: ^2 MG TABLETS^ 20 TABLETS PERIOD: 1 DAY
     Route: 048
     Dates: start: 20170122
  3. FELISON [Suspect]
     Active Substance: FLURAZEPAM MONOHYDROCHLORIDE
     Indication: DRUG ABUSE
     Dosage: ^30 MG HARD CAPSULES^ 30 CAPSULES PERIOD: 1 DAY
     Route: 048
     Dates: start: 20170122

REACTIONS (6)
  - Electrocardiogram QT prolonged [Unknown]
  - Slow speech [Unknown]
  - Dysarthria [Unknown]
  - Drug abuse [Unknown]
  - Haemodynamic instability [Unknown]
  - Poverty of speech [Unknown]

NARRATIVE: CASE EVENT DATE: 20170122
